FAERS Safety Report 16599377 (Version 1)
Quarter: 2019Q3

REPORT INFORMATION
  Report Type: Spontaneous
  Country: US (occurrence: US)
  Receive Date: 20190719
  Receipt Date: 20190719
  Transmission Date: 20191004
  Serious: Yes (Disabling)
  Sender: FDA-Public Use
  Company Number: US-AMREGENT-20191473

PATIENT
  Age: 72 Year
  Sex: Female

DRUGS (3)
  1. VENOFER [Suspect]
     Active Substance: IRON SUCROSE
     Dosage: 2 BAGS (UNKNOWN)
     Route: 042
     Dates: start: 20181031, end: 20181031
  2. DEPRESSION MEDICATION [Concomitant]
     Active Substance: UNSPECIFIED INGREDIENT
     Dosage: UNKNOWN
     Route: 065
  3. NERVE MEDICATION [Concomitant]
     Active Substance: UNSPECIFIED INGREDIENT
     Dosage: UNKNOWN
     Route: 065

REACTIONS (13)
  - Feeling abnormal [Not Recovered/Not Resolved]
  - Pain [Unknown]
  - Temporomandibular joint syndrome [Unknown]
  - Arthralgia [Not Recovered/Not Resolved]
  - Infusion site swelling [Recovering/Resolving]
  - Infusion site bruising [Not Recovered/Not Resolved]
  - Anaphylactic shock [Unknown]
  - Dysgeusia [Unknown]
  - Myalgia [Unknown]
  - Gait inability [Recovered/Resolved with Sequelae]
  - Feeding disorder [Unknown]
  - Extravasation [Unknown]
  - Paraesthesia [Not Recovered/Not Resolved]

NARRATIVE: CASE EVENT DATE: 2018
